FAERS Safety Report 5272856-4 (Version None)
Quarter: 2007Q1

REPORT INFORMATION
  Report Type: 
  Country: None (occurrence: None)
  Receive Date: 20070322
  Receipt Date: 20070313
  Transmission Date: 20070707
  Serious: Yes (Other)
  Sender: FDA-Public Use
  Company Number: 2007UW04872

PATIENT
  Sex: Male
  Weight: 3.2 kg

DRUGS (1)
  1. SYMBICORT [Suspect]
     Dosage: 12/400 UG ONE INHALATION BID
     Route: 055
     Dates: start: 20070120

REACTIONS (2)
  - JAUNDICE [None]
  - PREMATURE BABY [None]
